FAERS Safety Report 17664314 (Version 1)
Quarter: 2020Q2

REPORT INFORMATION
  Report Type: Spontaneous
  Country: US (occurrence: US)
  Receive Date: 20200414
  Receipt Date: 20200414
  Transmission Date: 20200713
  Serious: No
  Sender: FDA-Public Use
  Company Number: US-BAUSCH-BL-2020-008742

PATIENT
  Age: 41 Year
  Sex: Male

DRUGS (1)
  1. TRETINOIN. [Suspect]
     Active Substance: TRETINOIN
     Indication: ACNE
     Dosage: START DATE: A FEW MONTHS AGO, SMALL AMOUNT ON HIS FACE EVERY NIGHT
     Route: 061

REACTIONS (6)
  - Burning sensation [Not Recovered/Not Resolved]
  - Drug ineffective [Unknown]
  - Product quality issue [Unknown]
  - Erythema [Not Recovered/Not Resolved]
  - Expired product administered [Unknown]
  - Intentional product use issue [Unknown]
